FAERS Safety Report 9704402 (Version 1)
Quarter: 2013Q4

REPORT INFORMATION
  Report Type: Report from Study
  Country: AT (occurrence: AT)
  Receive Date: 20131122
  Receipt Date: 20131122
  Transmission Date: 20140711
  Serious: Yes (Other)
  Sender: FDA-Public Use
  Company Number: PHHY2013AT134304

PATIENT
  Sex: 0

DRUGS (1)
  1. IMATINIB [Suspect]
     Dosage: 800 MG, UNK

REACTIONS (4)
  - Anal fissure [Unknown]
  - Pseudomonal sepsis [Unknown]
  - Vomiting [Unknown]
  - Headache [Unknown]
